FAERS Safety Report 6687687-8 (Version None)
Quarter: 2010Q2

REPORT INFORMATION
  Report Type: 
  Country: None (occurrence: None)
  Receive Date: 20100409
  Receipt Date: 20100104
  Transmission Date: 20101027
  Serious: Yes (Other)
  Sender: FDA-Public Use
  Company Number: AE 2009-097

PATIENT
  Age: 49 Year
  Sex: Male
  Weight: 81.6475 kg

DRUGS (1)
  1. FAZACLO ODT [Suspect]
     Indication: SCHIZOAFFECTIVE DISORDER
     Dosage: 150 MG DAILY PO
     Route: 048
     Dates: start: 20050708, end: 20090729

REACTIONS (1)
  - AGRANULOCYTOSIS [None]
